FAERS Safety Report 4443204-4 (Version None)
Quarter: 2004Q3

REPORT INFORMATION
  Report Type: 
  Country: None (occurrence: None)
  Receive Date: 20040903
  Receipt Date: 20040630
  Transmission Date: 20050211
  Serious: Yes (Other)
  Sender: FDA-Public Use
  Company Number: 2004UW13597

PATIENT

DRUGS (1)
  1. CRESTOR [Suspect]
     Dosage: 10 MG PO
     Route: 048

REACTIONS (4)
  - ARTHRALGIA [None]
  - LOCALISED OEDEMA [None]
  - NECK PAIN [None]
  - RED BLOOD CELL SEDIMENTATION RATE INCREASED [None]
